FAERS Safety Report 24297276 (Version 3)
Quarter: 2024Q3

REPORT INFORMATION
  Report Type: Spontaneous
  Country: TW (occurrence: TW)
  Receive Date: 20240909
  Receipt Date: 20240927
  Transmission Date: 20241016
  Serious: Yes (Other)
  Sender: SANOFI AVENTIS
  Company Number: TW-SANOFI-02207648

PATIENT
  Age: 88 Year
  Sex: Female

DRUGS (4)
  1. PLAVIX [Suspect]
     Active Substance: CLOPIDOGREL BISULFATE
     Indication: Acute coronary syndrome
     Dosage: UNK UNK, QD ONCE DAILY, MONOTHERAPY (WITHOUT ASPIRIN)
     Route: 048
     Dates: start: 2014
  2. PLAVIX [Suspect]
     Active Substance: CLOPIDOGREL BISULFATE
     Indication: Stent placement
  3. LIPITOR [Concomitant]
     Active Substance: ATORVASTATIN CALCIUM
     Dosage: UNK
  4. LIPITOR [Concomitant]
     Active Substance: ATORVASTATIN CALCIUM

REACTIONS (11)
  - Cerebrovascular accident [Unknown]
  - Arthropathy [Unknown]
  - Cerebral thrombosis [Unknown]
  - Dementia [Unknown]
  - Condition aggravated [Unknown]
  - Cognitive disorder [Unknown]
  - Aphasia [Unknown]
  - Dysphagia [Unknown]
  - Haemorrhage [Unknown]
  - Off label use [Unknown]
  - Drug ineffective [Unknown]

NARRATIVE: CASE EVENT DATE: 20240701
